FAERS Safety Report 7429607-4 (Version None)
Quarter: 2011Q2

REPORT INFORMATION
  Report Type: 
  Country: None (occurrence: None)
  Receive Date: 20110421
  Receipt Date: 20110323
  Transmission Date: 20111010
  Serious: Yes (Hospitalization)
  Sender: FDA-Public Use
  Company Number: B0709447A

PATIENT
  Sex: Male

DRUGS (5)
  1. VENTOLIN [Concomitant]
     Dates: start: 20000101
  2. VENTOLIN DISKUS [Suspect]
     Route: 065
  3. BETAPRED [Concomitant]
     Dates: start: 20000101
  4. BRICANYL [Concomitant]
     Dates: start: 20000101
  5. PULMICORT [Concomitant]
     Dates: start: 20000101

REACTIONS (2)
  - LUNG DISORDER [None]
  - GASTROOESOPHAGEAL REFLUX DISEASE [None]
